FAERS Safety Report 8360301-1 (Version None)
Quarter: 2012Q2

REPORT INFORMATION
  Report Type: 
  Country: None (occurrence: None)
  Receive Date: 20120515
  Receipt Date: 20120504
  Transmission Date: 20120825
  Serious: Yes (Hospitalization)
  Sender: FDA-Public Use
  Company Number: US-NOVOPROD-350915

PATIENT
  Age: 48 Year
  Sex: Male
  Weight: 156.46 kg

DRUGS (1)
  1. VICTOZA [Suspect]
     Indication: TYPE 2 DIABETES MELLITUS
     Dosage: 1.2 MG, QD
     Route: 058
     Dates: start: 20120227, end: 20120418

REACTIONS (2)
  - KETOACIDOSIS [None]
  - PANCREATITIS [None]
